FAERS Safety Report 6201859-8 (Version None)
Quarter: 2009Q2

REPORT INFORMATION
  Report Type: 
  Country: None (occurrence: None)
  Receive Date: 20090520
  Receipt Date: 20090514
  Transmission Date: 20091009
  Serious: Yes (Hospitalization)
  Sender: FDA-Public Use
  Company Number: 1000006272

PATIENT
  Age: 80 Year
  Sex: Female

DRUGS (4)
  1. BYSTOLIC [Suspect]
     Indication: HYPERTENSION
     Dosage: 10 MG (10 MG, 1 IN 1 D), ORAL
     Route: 048
     Dates: start: 20090430
  2. COZAAR [Concomitant]
  3. BETAPACE [Concomitant]
  4. PRANDIN [Concomitant]

REACTIONS (6)
  - BLOOD PRESSURE INCREASED [None]
  - EYE PAIN [None]
  - FATIGUE [None]
  - FLATULENCE [None]
  - PHOTOPSIA [None]
  - URINE ODOUR ABNORMAL [None]
